FAERS Safety Report 5490976-6 (Version None)
Quarter: 2007Q4

REPORT INFORMATION
  Report Type: 
  Country: None (occurrence: None)
  Receive Date: 20071019
  Receipt Date: 20071009
  Transmission Date: 20080405
  Serious: No
  Sender: FDA-Public Use
  Company Number: NO-PFIZER INC-2007079530

PATIENT
  Sex: Female

DRUGS (3)
  1. CYTOTEC [Suspect]
     Indication: ABORTION INDUCED
     Dosage: DAILY DOSE:.8MG-FREQ:ONCE
     Route: 067
  2. MIFEPRISTONE [Suspect]
     Indication: ABORTION INDUCED
     Dosage: DAILY DOSE:200MG-FREQ:ONCE
     Route: 048
  3. CODEINE PHOSPHATE AND ACETAMINOPHEN [Concomitant]
     Route: 054

REACTIONS (1)
  - NO ADVERSE REACTION [None]
